APPROVED DRUG PRODUCT: HYDROCORTISONE VALERATE
Active Ingredient: HYDROCORTISONE VALERATE
Strength: 0.2%
Dosage Form/Route: CREAM;TOPICAL
Application: A213724 | Product #001 | TE Code: AB
Applicant: COSETTE PHARMACEUTICALS INC
Approved: Feb 11, 2021 | RLD: No | RS: No | Type: RX